FAERS Safety Report 6447409-2 (Version None)
Quarter: 2009Q4

REPORT INFORMATION
  Report Type: 
  Country: None (occurrence: None)
  Receive Date: 20091119
  Receipt Date: 20091113
  Transmission Date: 20100525
  Serious: Yes (Other)
  Sender: FDA-Public Use
  Company Number: GB-B.I. PHARMACEUTICALS,INC./RIDGEFIELD-2009-UK-01020UK

PATIENT
  Sex: Male

DRUGS (5)
  1. PERSANTIN [Suspect]
     Indication: TRANSIENT ISCHAEMIC ATTACK
     Dosage: 400 MG
     Route: 048
  2. ASPIRIN [Concomitant]
  3. DETRUSITOL XL [Concomitant]
  4. PENTASA [Concomitant]
  5. NIFEDIPINE [Concomitant]

REACTIONS (1)
  - GASTROINTESTINAL CARCINOMA [None]
